FAERS Safety Report 11665531 (Version 1)
Quarter: 2015Q4

REPORT INFORMATION
  Report Type: Spontaneous
  Country: US (occurrence: US)
  Receive Date: 20151027
  Receipt Date: 20151027
  Transmission Date: 20160304
  Serious: No
  Sender: FDA-Public Use
  Company Number: US-ELI_LILLY_AND_COMPANY-US201001000669

PATIENT
  Sex: Female

DRUGS (1)
  1. FORTEO [Suspect]
     Active Substance: TERIPARATIDE
     Indication: OSTEOPOROSIS
     Dosage: 20 UG, DAILY (1/D)
     Dates: start: 200905

REACTIONS (9)
  - Abdominal distension [Unknown]
  - Nasal discomfort [Not Recovered/Not Resolved]
  - Malaise [Unknown]
  - Cystitis [Unknown]
  - Breath sounds abnormal [Unknown]
  - Abdominal discomfort [Unknown]
  - Influenza [Unknown]
  - Flatulence [Unknown]
  - Sinusitis [Not Recovered/Not Resolved]

NARRATIVE: CASE EVENT DATE: 2009
